FAERS Safety Report 16093667 (Version 1)
Quarter: 2019Q1

REPORT INFORMATION
  Report Type: Spontaneous
  Country: US (occurrence: US)
  Receive Date: 20190320
  Receipt Date: 20190320
  Transmission Date: 20190418
  Serious: No
  Sender: FDA-Public Use
  Company Number: US-ELI_LILLY_AND_COMPANY-US201903007169

PATIENT
  Sex: Female

DRUGS (1)
  1. HUMALOG [Suspect]
     Active Substance: INSULIN LISPRO
     Indication: PRODUCT USED FOR UNKNOWN INDICATION
     Dosage: UNK, UNKNOWN
     Route: 065

REACTIONS (8)
  - Asthma [Unknown]
  - Psoriasis [Recovered/Resolved]
  - Vomiting [Unknown]
  - Food poisoning [Unknown]
  - Injection site pain [Unknown]
  - Injection site pruritus [Unknown]
  - Abdominal pain upper [Unknown]
  - Haematemesis [Unknown]

NARRATIVE: CASE EVENT DATE: 201811
